FAERS Safety Report 21474155 (Version 1)
Quarter: 2022Q4

REPORT INFORMATION
  Report Type: Spontaneous
  Country: US (occurrence: US)
  Receive Date: 20221018
  Receipt Date: 20221018
  Transmission Date: 20230113
  Serious: Yes (Other)
  Sender: FDA-Public Use
  Company Number: US-BAXTER-2022BAX021782

PATIENT
  Age: 29 Year
  Sex: Female

DRUGS (1)
  1. LIDOCAINE [Suspect]
     Active Substance: LIDOCAINE
     Dosage: INJECTION
     Route: 008

REACTIONS (3)
  - Unresponsive to stimuli [Unknown]
  - Pulse absent [Recovering/Resolving]
  - Exposure during pregnancy [Unknown]
